FAERS Safety Report 5305837-2 (Version None)
Quarter: 2007Q1

REPORT INFORMATION
  Report Type: 
  Country: None (occurrence: None)
  Receive Date: 20070201
  Receipt Date: 20070112
  Transmission Date: 20070707
  Serious: No
  Sender: FDA-Public Use
  Company Number: 2006PV024911

PATIENT
  Age: 69 Year
  Sex: Male
  Weight: 107.9561 kg

DRUGS (8)
  1. BYETTA [Suspect]
     Indication: DIABETES MELLITUS NON-INSULIN-DEPENDENT
     Dosage: SEE IMAGE
     Route: 048
     Dates: start: 20061101, end: 20061203
  2. BYETTA [Suspect]
     Indication: DIABETES MELLITUS NON-INSULIN-DEPENDENT
     Dosage: SEE IMAGE
     Route: 048
     Dates: start: 20061107, end: 20061203
  3. BYETTA [Suspect]
     Indication: DIABETES MELLITUS NON-INSULIN-DEPENDENT
     Dosage: SEE IMAGE
     Route: 048
     Dates: start: 20061204
  4. GLYBURIDE [Concomitant]
  5. GLUCOPHAGE [Concomitant]
  6. ASPIRIN [Concomitant]
  7. ACTOS [Concomitant]
  8. GLYBURIDE [Concomitant]

REACTIONS (4)
  - COUGH [None]
  - INJECTION SITE BRUISING [None]
  - INJECTION SITE HAEMORRHAGE [None]
  - NASOPHARYNGITIS [None]
